FAERS Safety Report 6180584-6 (Version None)
Quarter: 2009Q2

REPORT INFORMATION
  Report Type: 
  Country: None (occurrence: None)
  Receive Date: 20090506
  Receipt Date: 20090428
  Transmission Date: 20091009
  Serious: Yes (Hospitalization)
  Sender: FDA-Public Use
  Company Number: FR-B.I. PHARMACEUTICALS,INC./RIDGEFIELD-2009-FF-00297FF

PATIENT
  Sex: Female

DRUGS (7)
  1. MICARDIS [Suspect]
     Route: 048
     Dates: start: 20071101, end: 20080101
  2. ATACAND [Concomitant]
     Route: 048
     Dates: start: 20080101, end: 20090113
  3. ATACAND [Concomitant]
     Route: 048
     Dates: start: 20080114, end: 20090225
  4. LASIX [Concomitant]
  5. AMLODIPINE BESYLATE [Concomitant]
  6. NITROGLYCERIN [Concomitant]
  7. NEORECORMON [Concomitant]
     Dates: start: 20080801

REACTIONS (1)
  - RENAL FAILURE CHRONIC [None]
